FAERS Safety Report 23026965 (Version 1)
Quarter: 2023Q4

REPORT INFORMATION
  Report Type: Report from Study
  Country: AE (occurrence: None)
  Receive Date: 20231004
  Receipt Date: 20231004
  Transmission Date: 20240109
  Serious: Yes (Hospitalization)
  Sender: FDA-Public Use
  Company Number: 2023A218893

PATIENT
  Age: 36 Year
  Sex: Female
  Weight: 57 kg

DRUGS (7)
  1. EVUSHELD [Suspect]
     Active Substance: CILGAVIMAB\TIXAGEVIMAB
     Indication: COVID-19 treatment
     Dosage: 600 MG
     Route: 030
     Dates: start: 20221019
  2. ALUMINIUM HYDROXIDE AND MAGNESIUM HYDROXIDE (MAALOX) [Concomitant]
     Indication: Gastrooesophageal reflux disease
     Route: 048
     Dates: start: 20220910
  3. ONDANSETRON [Concomitant]
     Active Substance: ONDANSETRON
     Indication: Nausea
     Route: 042
     Dates: start: 20220910
  4. ONDANSETRON [Concomitant]
     Active Substance: ONDANSETRON
     Indication: Burning sensation
     Route: 042
     Dates: start: 20220910
  5. VIASOL [Concomitant]
     Indication: Gastrooesophageal reflux disease
     Route: 048
     Dates: start: 20220910
  6. ACETAMINOPHEN [Concomitant]
     Active Substance: ACETAMINOPHEN
     Indication: Pain
     Route: 042
     Dates: start: 20220910
  7. MYCOSTSAT [Concomitant]
     Indication: Oral fungal infection
     Route: 048
     Dates: start: 20220910

REACTIONS (1)
  - COVID-19 [Recovered/Resolved]

NARRATIVE: CASE EVENT DATE: 20230911
